FAERS Safety Report 7505412-5 (Version None)
Quarter: 2011Q2

REPORT INFORMATION
  Report Type: 
  Country: None (occurrence: None)
  Receive Date: 20110526
  Receipt Date: 20110512
  Transmission Date: 20111010
  Serious: Yes (Hospitalization, Other)
  Sender: FDA-Public Use
  Company Number: PHHY2011PL30431

PATIENT
  Sex: Female
  Weight: 76 kg

DRUGS (3)
  1. EXTAVIA [Suspect]
     Indication: RELAPSING-REMITTING MULTIPLE SCLEROSIS
     Dosage: 250 UG/ML
     Route: 058
     Dates: start: 20110216, end: 20110406
  2. LANTUS [Concomitant]
     Route: 058
  3. HUMALOG [Concomitant]
     Indication: DIABETES MELLITUS
     Route: 058

REACTIONS (4)
  - BLOOD GLUCOSE DECREASED [None]
  - SKIN REACTION [None]
  - HEADACHE [None]
  - TYPE 1 DIABETES MELLITUS [None]
